FAERS Safety Report 4687139-0 (Version None)
Quarter: 2005Q2

REPORT INFORMATION
  Report Type: 
  Country: None (occurrence: None)
  Receive Date: 20050607
  Receipt Date: 20050523
  Transmission Date: 20051028
  Serious: Yes (Hospitalization)
  Sender: FDA-Public Use
  Company Number: USA050598750

PATIENT
  Age: 66 Year
  Sex: Female

DRUGS (4)
  1. FORTEO [Suspect]
     Dates: start: 20050201
  2. INDERAL [Concomitant]
  3. SYNTHROID [Concomitant]
  4. ZOCOR [Concomitant]

REACTIONS (8)
  - COUGH [None]
  - DYSPHONIA [None]
  - FATIGUE [None]
  - INFLUENZA [None]
  - MUSCULAR WEAKNESS [None]
  - NAUSEA [None]
  - PHARMACEUTICAL PRODUCT COMPLAINT [None]
  - PNEUMONIA VIRAL [None]
